FAERS Safety Report 16883222 (Version 1)
Quarter: 2019Q4

REPORT INFORMATION
  Report Type: Spontaneous
  Country: US (occurrence: US)
  Receive Date: 20191004
  Receipt Date: 20191004
  Transmission Date: 20200122
  Serious: No
  Sender: FDA-Public Use
  Company Number: US-SA-2019SA271210

PATIENT
  Age: 56 Year
  Sex: Female

DRUGS (2)
  1. KEVZARA [Suspect]
     Active Substance: SARILUMAB
     Dosage: 200 MG
     Route: 058
     Dates: start: 201901, end: 201909
  2. KEVZARA [Suspect]
     Active Substance: SARILUMAB
     Dosage: 200 UNK
     Route: 058
     Dates: start: 20190926

REACTIONS (4)
  - Rash erythematous [Not Recovered/Not Resolved]
  - Pain [Unknown]
  - Urinary tract infection [Recovered/Resolved]
  - Tenderness [Not Recovered/Not Resolved]

NARRATIVE: CASE EVENT DATE: 201909
